FAERS Safety Report 18682717 (Version 1)
Quarter: 2020Q4

REPORT INFORMATION
  Report Type: Spontaneous
  Country: US (occurrence: US)
  Receive Date: 20201229
  Receipt Date: 20201229
  Transmission Date: 20210114
  Serious: No
  Sender: FDA-Public Use
  Company Number: US-ASTRAZENECA-2020SF40653

PATIENT
  Sex: Female

DRUGS (1)
  1. BYDUREON BCISE [Suspect]
     Active Substance: EXENATIDE
     Route: 058

REACTIONS (5)
  - Injection site haemorrhage [Unknown]
  - Intentional device misuse [Not Recovered/Not Resolved]
  - Device leakage [Unknown]
  - Device issue [Unknown]
  - Drug delivery system malfunction [Unknown]
